FAERS Safety Report 5060428-6 (Version None)
Quarter: 2006Q3

REPORT INFORMATION
  Report Type: 
  Country: None (occurrence: None)
  Receive Date: 20060720
  Receipt Date: 20060707
  Transmission Date: 20061208
  Serious: Yes (Hospitalization, Other)
  Sender: FDA-Public Use
  Company Number: CLOF-10276

PATIENT
  Age: 48 Year
  Sex: Female
  Weight: 103.1 kg

DRUGS (47)
  1. CLOFARABINE [Suspect]
     Indication: ACUTE LYMPHOCYTIC LEUKAEMIA RECURRENT
     Dosage: 84 MG DAILY IV
     Route: 042
     Dates: start: 20060608, end: 20060612
  2. CYTARABINE [Suspect]
     Indication: ACUTE LYMPHOCYTIC LEUKAEMIA RECURRENT
     Dosage: 4220 MG DAILY IV
     Route: 042
     Dates: start: 20060608, end: 20060612
  3. MAGNESIUM [Concomitant]
  4. IV MEDS (NOT SPECIFIED) [Concomitant]
  5. CEFEPIME [Concomitant]
  6. LASIX [Concomitant]
  7. PHENERGAN HCL [Concomitant]
  8. VANCOMYCIN [Concomitant]
  9. AMPHOTERICIN B [Concomitant]
  10. VORICONAZLE [Concomitant]
  11. ACYCLOVIR [Concomitant]
  12. ALBUTEROL SPIROS [Concomitant]
  13. AMIKACIN [Concomitant]
  14. AMILORIDE [Concomitant]
  15. CALCIUM POLYCARBOPHIL [Concomitant]
  16. MAXIPIME [Concomitant]
  17. PERIDEX [Concomitant]
  18. BENADRYL [Concomitant]
  19. LEXAPRO [Concomitant]
  20. AMIDATE [Concomitant]
  21. HEPARIN SODIUM [Concomitant]
  22. LINEZOLID [Concomitant]
  23. MAGNESIUM SULFATE [Concomitant]
  24. MAGNESIUM OXIDE [Concomitant]
  25. AYGESTIN [Concomitant]
  26. PROTONIX [Concomitant]
  27. PENTAMIDINE ISETHIONATE [Concomitant]
  28. ZOSYN [Concomitant]
  29. VITAMIN K [Concomitant]
  30. PREDNISONE [Concomitant]
  31. POTASSIUM PHOSPHATES [Concomitant]
  32. RANITIDINE [Concomitant]
  33. ZEMURON [Concomitant]
  34. REQUIP [Concomitant]
  35. LEUKINE [Concomitant]
  36. SODIUM BICARBONATE [Concomitant]
  37. BACTRIM [Concomitant]
  38. AMBIEN [Concomitant]
  39. ACETAMINOPHEN [Concomitant]
  40. GUAIFENESIN [Concomitant]
  41. HALDOL [Concomitant]
  42. LORAZEPAM [Concomitant]
  43. OXYCODONE HCL [Concomitant]
  44. SUBLIMAZE PRESERVATIVE FREE [Concomitant]
  45. INSULIN [Concomitant]
  46. VERSED [Concomitant]
  47. SODIUM PHOSPHATES [Concomitant]

REACTIONS (26)
  - ATRIAL FLUTTER [None]
  - BLOOD CREATININE INCREASED [None]
  - CARDIAC VENTRICULAR DISORDER [None]
  - CONDUCTION DISORDER [None]
  - CONSTIPATION [None]
  - CULTURE URINE POSITIVE [None]
  - DIARRHOEA [None]
  - DYSPNOEA [None]
  - ELECTROCARDIOGRAM ST-T CHANGE [None]
  - ENTEROCOCCAL INFECTION [None]
  - HYPOXIA [None]
  - INFECTION [None]
  - LUNG DISORDER [None]
  - LUNG NEOPLASM [None]
  - NAUSEA [None]
  - NO THERAPEUTIC RESPONSE [None]
  - OEDEMA PERIPHERAL [None]
  - PLATELET COUNT DECREASED [None]
  - PLEURAL EFFUSION [None]
  - PNEUMONIA [None]
  - PULMONARY OEDEMA [None]
  - RED BLOOD CELL COUNT DECREASED [None]
  - RESPIRATORY DISTRESS [None]
  - SINUS TACHYCARDIA [None]
  - SPLEEN DISORDER [None]
  - VOMITING [None]
